FAERS Safety Report 5656552-7 (Version None)
Quarter: 2008Q1

REPORT INFORMATION
  Report Type: 
  Country: None (occurrence: None)
  Receive Date: 20080310
  Receipt Date: 20080305
  Transmission Date: 20080703
  Serious: Yes (Hospitalization)
  Sender: FDA-Public Use
  Company Number: DE-BRISTOL-MYERS SQUIBB COMPANY-14021919

PATIENT
  Age: 60 Year
  Sex: Male
  Weight: 85 kg

DRUGS (13)
  1. CISPLATIN [Suspect]
     Indication: NON-SMALL CELL LUNG CANCER
     Dosage: ON DAY 8 OF A 28 DAY CYCLE. DISCONTINUED ON 10-DEC-2007
     Route: 042
     Dates: start: 20071206, end: 20071206
  2. PEMETREXED DISODIUM [Suspect]
     Indication: NON-SMALL CELL LUNG CANCER
     Dosage: DAY 8 OF A 28 DAY CYCLE, DISCONTINUED ON 10-DEC-2007
     Route: 042
     Dates: start: 20071206, end: 20071206
  3. ENZASTAURIN [Suspect]
     Indication: NON-SMALL CELL LUNG CANCER
     Dosage: 500MCG DAILY ORALLY AS LOADING DOSE ON DAY 1 OF 28DAY CYCLE + 125MCG 2/D DAY2-28 OF 28DAY CYCLE
     Route: 048
     Dates: start: 20071129, end: 20071210
  4. FOLIC ACID [Concomitant]
     Indication: SUPPLEMENTATION THERAPY
     Dates: start: 20071127
  5. VITAMIN B-12 [Concomitant]
     Indication: SUPPLEMENTATION THERAPY
     Dates: start: 20071127
  6. DEXAMETHASONE TAB [Concomitant]
     Indication: SUPPLEMENTATION THERAPY
     Dates: start: 20071205, end: 20071207
  7. TOREM [Concomitant]
  8. NOVALGIN [Concomitant]
     Indication: CHEST PAIN
  9. TRAMAL [Concomitant]
     Indication: CHEST PAIN
     Dates: start: 20071123
  10. PARACODIN BITARTRATE TAB [Concomitant]
     Indication: COUGH
  11. DICODID [Concomitant]
     Indication: COUGH
     Dates: start: 20071119
  12. OXAZEPAM [Concomitant]
     Indication: SEDATION
     Dates: start: 20071119
  13. MCP [Concomitant]
     Dates: start: 20071123

REACTIONS (4)
  - DYSPNOEA [None]
  - ILEUS PARALYTIC [None]
  - PERICARDIAL EFFUSION [None]
  - PLEURAL EFFUSION [None]
